FAERS Safety Report 8155446-5 (Version None)
Quarter: 2012Q1

REPORT INFORMATION
  Report Type: 
  Country: None (occurrence: None)
  Receive Date: 20120222
  Receipt Date: 20120213
  Transmission Date: 20120608
  Serious: Yes (Hospitalization)
  Sender: FDA-Public Use
  Company Number: JP-VERTEX PHARMACEUTICALS INC.-AE-2012-002358

PATIENT
  Age: 66 Year
  Sex: Male

DRUGS (6)
  1. PEGINTERFERON ALFA-2B [Concomitant]
     Route: 051
  2. RIBAVIRIN [Concomitant]
     Route: 048
     Dates: start: 20120215
  3. TELAVIC (TELAPREVIR) [Suspect]
     Route: 048
     Dates: start: 20120111
  4. RIBAVIRIN [Concomitant]
  5. TELAVIC (TELAPREVIR) [Suspect]
     Route: 048
     Dates: start: 20120215
  6. RIBAVIRIN [Concomitant]
     Route: 048
     Dates: start: 20120201

REACTIONS (4)
  - HAEMOGLOBIN DECREASED [None]
  - DRY SKIN [None]
  - PROSTATITIS [None]
  - DECREASED APPETITE [None]
